FAERS Safety Report 5455493-8 (Version None)
Quarter: 2007Q3

REPORT INFORMATION
  Report Type: 
  Country: None (occurrence: None)
  Receive Date: 20070918
  Receipt Date: 20070330
  Transmission Date: 20080115
  Serious: Yes (Other)
  Sender: FDA-Public Use
  Company Number: US-ASTRAZENECA-2006UW21303

PATIENT
  Age: 16302 Day
  Sex: Female
  Weight: 112.7 kg

DRUGS (5)
  1. SEROQUEL [Suspect]
     Indication: MENTAL DISORDER
     Route: 048
     Dates: start: 20011101
  2. ABILIFY [Concomitant]
     Dates: start: 20000101
  3. CLOZARIL [Concomitant]
     Dates: start: 20020101
  4. NAVANE [Concomitant]
     Dates: start: 20000101
  5. RISPERDAL [Concomitant]
     Dates: start: 20020101

REACTIONS (2)
  - DIABETES MELLITUS [None]
  - DIABETIC COMA [None]
